FAERS Safety Report 10438235 (Version 1)
Quarter: 2014Q3

REPORT INFORMATION
  Report Type: Spontaneous
  Country: US (occurrence: None)
  Receive Date: 20140905
  Receipt Date: 20140905
  Transmission Date: 20150326
  Serious: Yes (Disabling)
  Sender: FDA-Public Use
  Company Number: None

PATIENT
  Age: 67 Year
  Sex: Male

DRUGS (1)
  1. PROCRIT [Suspect]
     Active Substance: ERYTHROPOIETIN
     Indication: PLASMA CELL MYELOMA
     Route: 058
     Dates: start: 20140812

REACTIONS (1)
  - Renal failure [None]

NARRATIVE: CASE EVENT DATE: 20140902
